FAERS Safety Report 5615228-2 (Version None)
Quarter: 2008Q1

REPORT INFORMATION
  Report Type: 
  Country: None (occurrence: None)
  Receive Date: 20080205
  Receipt Date: 20080205
  Transmission Date: 20080703
  Serious: No
  Sender: FDA-Public Use
  Company Number: None

PATIENT
  Age: 53 Year
  Sex: Male
  Weight: 149.687 kg

DRUGS (1)
  1. SIMVASTATIN [Suspect]
     Dosage: 40MG ONCE PER DAY PO
     Route: 048
     Dates: start: 20080116, end: 20080130

REACTIONS (2)
  - DRUG HYPERSENSITIVITY [None]
  - PHARMACEUTICAL PRODUCT COMPLAINT [None]
